FAERS Safety Report 7022849-1 (Version None)
Quarter: 2010Q3

REPORT INFORMATION
  Report Type: 
  Country: None (occurrence: None)
  Receive Date: 20100930
  Receipt Date: 20100923
  Transmission Date: 20110219
  Serious: Yes (Other)
  Sender: FDA-Public Use
  Company Number: B0677032A

PATIENT
  Sex: Female

DRUGS (3)
  1. AMOXICILLIN AND CLAVULANATE POTASSIUM [Suspect]
     Indication: PRODUCT USED FOR UNKNOWN INDICATION
     Route: 048
     Dates: start: 20061101
  2. FLUTICASONE PROPIONATE [Concomitant]
     Route: 055
  3. MOMETASONE FUROATE [Concomitant]

REACTIONS (6)
  - ANGIOEDEMA [None]
  - DYSPNOEA [None]
  - MALAISE [None]
  - PRURITUS [None]
  - URTICARIA [None]
  - WHEEZING [None]
